FAERS Safety Report 8891317 (Version 1)
Quarter: 2012Q4

REPORT INFORMATION
  Report Type: Spontaneous
  Country: US (occurrence: None)
  Receive Date: 20120918
  Receipt Date: 20120918
  Transmission Date: 20130627
  Serious: No
  Sender: FDA-Public Use
  Company Number: None

PATIENT
  Sex: Male
  Weight: 104.1 kg

DRUGS (1)
  1. ZONISAMIDE [Suspect]
     Indication: EPILEPSY
     Dosage: 100 mg; 3 qhs

REACTIONS (2)
  - Product substitution issue [None]
  - Convulsion [None]
